FAERS Safety Report 4448495-1 (Version None)
Quarter: 2004Q3

REPORT INFORMATION
  Report Type: 
  Country: None (occurrence: None)
  Receive Date: 20040914
  Receipt Date: 20040902
  Transmission Date: 20050211
  Serious: Yes (Hospitalization)
  Sender: FDA-Public Use
  Company Number: US-JNJFOC-20040901528

PATIENT
  Sex: Male
  Weight: 76.2 kg

DRUGS (9)
  1. INFLIXIMAB [Suspect]
     Indication: RHEUMATOID ARTHRITIS
     Route: 042
  2. INDOCIN [Concomitant]
  3. ARAVA [Concomitant]
  4. ENBREL [Concomitant]
     Route: 058
  5. ALLEGRA [Concomitant]
  6. ECOTRIN [Concomitant]
  7. OCUVITE [Concomitant]
  8. OCUVITE [Concomitant]
  9. OCUVITE [Concomitant]

REACTIONS (10)
  - ACUTE PULMONARY OEDEMA [None]
  - BLOOD PRESSURE INCREASED [None]
  - BURSAL OPERATION [None]
  - DYSPNOEA [None]
  - HYPERHIDROSIS [None]
  - MITRAL VALVE INCOMPETENCE [None]
  - PROCEDURAL COMPLICATION [None]
  - PRODUCTIVE COUGH [None]
  - SPUTUM DISCOLOURED [None]
  - TRICUSPID VALVE INCOMPETENCE [None]
